FAERS Safety Report 8276043-7 (Version None)
Quarter: 2012Q2

REPORT INFORMATION
  Report Type: 
  Country: None (occurrence: None)
  Receive Date: 20120412
  Receipt Date: 20120409
  Transmission Date: 20120825
  Serious: Yes (Hospitalization, Other)
  Sender: FDA-Public Use
  Company Number: US-SANOFI-AVENTIS-2012SA019509

PATIENT
  Age: 83 Year
  Sex: Female
  Weight: 72.5 kg

DRUGS (7)
  1. SOLOSTAR [Suspect]
     Dates: start: 20111201, end: 20120101
  2. APIDRA [Concomitant]
     Dosage: VIAL
     Route: 058
  3. INSULIN [Concomitant]
  4. APIDRA [Suspect]
     Dosage: PER SLIDING SCALE
     Route: 058
     Dates: start: 20111201, end: 20120101
  5. APIDRA [Suspect]
     Dosage: PER SLIDING SCALE
     Route: 058
     Dates: start: 20111201, end: 20120101
  6. COUMADIN [Concomitant]
  7. SOLOSTAR [Suspect]
     Dates: start: 20111201, end: 20120101

REACTIONS (7)
  - BLOOD GLUCOSE FLUCTUATION [None]
  - CONFUSIONAL STATE [None]
  - HAEMORRHAGE [None]
  - FALL [None]
  - PRODUCT QUALITY ISSUE [None]
  - HYPOGLYCAEMIC UNCONSCIOUSNESS [None]
  - BLOOD GLUCOSE DECREASED [None]
